FAERS Safety Report 17430263 (Version 1)
Quarter: 2020Q1

REPORT INFORMATION
  Report Type: Spontaneous
  Country: US (occurrence: US)
  Receive Date: 20200215
  Receipt Date: 20200215
  Transmission Date: 20200409
  Serious: Yes (Disabling)
  Sender: FDA-Public Use
  Company Number: None

PATIENT
  Age: 43 Year
  Sex: Female
  Weight: 114.75 kg

DRUGS (1)
  1. GRISEOFULVIN. [Suspect]
     Active Substance: GRISEOFULVIN
     Indication: TINEA INFECTION
     Dosage: ?          QUANTITY:60 TABLET(S);?
     Route: 048

REACTIONS (10)
  - Nausea [None]
  - Balance disorder [None]
  - Vertigo [None]
  - Insomnia [None]
  - Rash [None]
  - Psychomotor hyperactivity [None]
  - Headache [None]
  - Mental status changes [None]
  - Alopecia [None]
  - Constipation [None]

NARRATIVE: CASE EVENT DATE: 20191215
